FAERS Safety Report 5373047-9 (Version None)
Quarter: 2007Q2

REPORT INFORMATION
  Report Type: 
  Country: None (occurrence: None)
  Receive Date: 20070626
  Receipt Date: 20070614
  Transmission Date: 20071010
  Serious: Yes (Life-Threatening, Other)
  Sender: FDA-Public Use
  Company Number: DSA_29756_2007

PATIENT
  Sex: Male
  Weight: 67.1324 kg

DRUGS (2)
  1. DILTIAZEM [Suspect]
     Indication: ATRIAL FIBRILLATION
     Dosage: 240 MG QD ORAL
     Route: 048
     Dates: start: 20070306
  2. ASPIRIN [Concomitant]

REACTIONS (5)
  - CARDIAC FLUTTER [None]
  - DIZZINESS [None]
  - EXTRASYSTOLES [None]
  - HEADACHE [None]
  - HEART RATE IRREGULAR [None]
